FAERS Safety Report 21449749 (Version 2)
Quarter: 2022Q4

REPORT INFORMATION
  Report Type: Spontaneous
  Country: US (occurrence: US)
  Receive Date: 20221013
  Receipt Date: 20221031
  Transmission Date: 20230112
  Serious: Yes (Other)
  Sender: FDA-Public Use
  Company Number: US-TEVA-2022-US-2081734

PATIENT
  Age: 56 Year
  Sex: Male

DRUGS (3)
  1. PREDNISONE [Suspect]
     Active Substance: PREDNISONE
     Indication: Myasthenia gravis
     Dosage: 30 MILLIGRAM DAILY;
     Route: 048
  2. PREDNISONE [Suspect]
     Active Substance: PREDNISONE
     Indication: Acute febrile neutrophilic dermatosis
     Dosage: 80 MILLIGRAM DAILY; DOSE INCREASED TO TREAT SWEET SYNDROME
     Route: 048
  3. AZATHIOPRINE [Suspect]
     Active Substance: AZATHIOPRINE
     Indication: Myasthenia gravis
     Route: 065

REACTIONS (2)
  - Acute febrile neutrophilic dermatosis [Recovering/Resolving]
  - Myasthenia gravis crisis [Unknown]
